FAERS Safety Report 6248205-1 (Version None)
Quarter: 2009Q2

REPORT INFORMATION
  Report Type: 
  Country: None (occurrence: None)
  Receive Date: 20090629
  Receipt Date: 20090616
  Transmission Date: 20091009
  Serious: Yes (Hospitalization, Other)
  Sender: FDA-Public Use
  Company Number: US-JNJFOC-20090304115

PATIENT
  Sex: Female
  Weight: 105.69 kg

DRUGS (11)
  1. REMICADE [Suspect]
     Route: 042
  2. REMICADE [Suspect]
     Route: 042
  3. REMICADE [Suspect]
     Route: 042
  4. REMICADE [Suspect]
     Route: 042
  5. REMICADE [Suspect]
     Indication: PSORIASIS
     Route: 042
  6. METOPROLOL SUCCINATE [Concomitant]
     Indication: HYPERTENSION
  7. DYAZIDE [Concomitant]
     Indication: OEDEMA
  8. SPIRONOLACTONE [Concomitant]
     Indication: OEDEMA
  9. LACTULOSE [Concomitant]
     Indication: ENCEPHALOPATHY
  10. PERCOCET [Concomitant]
     Indication: ARTHRALGIA
  11. NADOLOL [Concomitant]

REACTIONS (4)
  - EAR INFECTION [None]
  - LIVER DISORDER [None]
  - POLYARTHRITIS [None]
  - RESPIRATORY TRACT INFECTION [None]
